FAERS Safety Report 9126810 (Version 1)
Quarter: 2013Q1

REPORT INFORMATION
  Report Type: Spontaneous
  Country: US (occurrence: US)
  Receive Date: 20130228
  Receipt Date: 20130228
  Transmission Date: 20140127
  Serious: No
  Sender: FDA-Public Use
  Company Number: US-TARO-2012P1054958

PATIENT
  Age: 55 Year
  Sex: Male
  Weight: 83.92 kg

DRUGS (10)
  1. LAMOTRIGINE [Suspect]
     Route: 048
     Dates: start: 20120726, end: 20120821
  2. LAMOTRIGINE [Suspect]
     Indication: DEPRESSION
     Route: 048
     Dates: start: 20120726, end: 20120821
  3. LAMOTRIGINE [Suspect]
     Dates: end: 20120726
  4. LAMOTRIGINE [Suspect]
     Indication: DEPRESSION
     Dates: end: 20120726
  5. LISINOPRIL [Concomitant]
  6. METOPROLOL [Concomitant]
  7. LORAZEPAM [Concomitant]
  8. ZOCOR [Concomitant]
  9. PRILOSEC [Concomitant]
  10. TERBINAFINE [Concomitant]

REACTIONS (3)
  - Anger [Recovered/Resolved]
  - Depressed mood [Recovered/Resolved]
  - Product substitution issue [Recovered/Resolved]
